FAERS Safety Report 4588818-6 (Version None)
Quarter: 2005Q1

REPORT INFORMATION
  Report Type: 
  Country: None (occurrence: None)
  Receive Date: 20050216
  Receipt Date: 20041206
  Transmission Date: 20050727
  Serious: Yes (Other)
  Sender: FDA-Public Use
  Company Number: 2005020667

PATIENT
  Age: 77 Year
  Sex: Female

DRUGS (4)
  1. CELECOXIB (CELECOXIB) [Suspect]
     Indication: ILL-DEFINED DISORDER
     Dosage: 200 MG (2 IN 1 D)
  2. METOPROLOL TARTRATE [Concomitant]
  3. CALCITONIN, SALMON (CALCITONIN, SALMON) [Concomitant]
  4. RABEPRAZOLE SODIUM [Concomitant]

REACTIONS (1)
  - HAEMORRHAGE [None]
